FAERS Safety Report 11597789 (Version 3)
Quarter: 2016Q2

REPORT INFORMATION
  Report Type: Spontaneous
  Country: JP (occurrence: JP)
  Receive Date: 20151006
  Receipt Date: 20160613
  Transmission Date: 20160815
  Serious: Yes (Other)
  Sender: FDA-Public Use
  Company Number: JP-PFIZER INC-2015330971

PATIENT
  Age: 79 Year
  Sex: Male

DRUGS (3)
  1. ZYVOX [Suspect]
     Active Substance: LINEZOLID
     Indication: STAPHYLOCOCCAL INFECTION
     Dosage: 1200 MG, DAILY
     Route: 048
     Dates: start: 20150826, end: 201509
  2. ZYVOX [Suspect]
     Active Substance: LINEZOLID
     Dosage: 600 MG, DAILY
     Route: 048
     Dates: start: 201509
  3. ZYVOX [Suspect]
     Active Substance: LINEZOLID
     Dosage: 1200 MG, DAILY
     Route: 048
     Dates: start: 201509, end: 201509

REACTIONS (3)
  - Bone marrow failure [Recovered/Resolved]
  - Renal impairment [Recovering/Resolving]
  - Platelet count decreased [Recovering/Resolving]

NARRATIVE: CASE EVENT DATE: 2015
